FAERS Safety Report 25719474 (Version 5)
Quarter: 2025Q4

REPORT INFORMATION
  Report Type: Report from Study
  Country: CA (occurrence: CA)
  Receive Date: 20250824
  Receipt Date: 20251007
  Transmission Date: 20260118
  Serious: Yes (Death, Other)
  Sender: JOHNSON AND JOHNSON
  Company Number: CA-JNJFOC-20250816966

PATIENT
  Age: 54 Year
  Sex: Male

DRUGS (11)
  1. RYBREVANT [Suspect]
     Active Substance: AMIVANTAMAB-VMJW
     Indication: Non-small cell lung cancer metastatic
     Dosage: START DATE: 13-AUG-2025
  2. RYBREVANT [Suspect]
     Active Substance: AMIVANTAMAB-VMJW
     Dosage: START DATE: 14-AUG-2025
  3. RYBREVANT [Suspect]
     Active Substance: AMIVANTAMAB-VMJW
     Dosage: START DATE: 13-AUG-2025
  4. RYBREVANT [Suspect]
     Active Substance: AMIVANTAMAB-VMJW
     Dosage: START DATE: 23-AUG-2025
  5. RYBREVANT [Suspect]
     Active Substance: AMIVANTAMAB-VMJW
     Dosage: START DATE: 23-AUG-2025
     Dates: start: 20250813, end: 20250829
  6. DEXAMETHASONE [Concomitant]
     Active Substance: DEXAMETHASONE
     Indication: Product used for unknown indication
  7. DOXYCYCLINE [Concomitant]
     Active Substance: DOXYCYCLINE
     Indication: Product used for unknown indication
  8. PANTOPRAZOLE [Concomitant]
     Active Substance: PANTOPRAZOLE
     Indication: Product used for unknown indication
  9. ZOFRAN [Concomitant]
     Active Substance: ONDANSETRON HYDROCHLORIDE
     Indication: Product used for unknown indication
  10. METOCLOPRAMIDE HYDROCHLORIDE [Concomitant]
     Active Substance: METOCLOPRAMIDE HYDROCHLORIDE
     Indication: Product used for unknown indication
  11. TAGRISSO [Concomitant]
     Active Substance: OSIMERTINIB
     Indication: Product used for unknown indication
     Dates: start: 20250820

REACTIONS (16)
  - Death [Fatal]
  - Loss of consciousness [Recovered/Resolved]
  - Infusion related reaction [Recovered/Resolved]
  - Partial seizures [Recovering/Resolving]
  - Urinary retention [Unknown]
  - Flushing [Recovered/Resolved]
  - Musculoskeletal stiffness [Recovered/Resolved]
  - Speech disorder [Recovered/Resolved]
  - Headache [Unknown]
  - Purpura [Not Recovered/Not Resolved]
  - Hepatic enzyme increased [Unknown]
  - Rash [Recovering/Resolving]
  - Hyperhidrosis [Not Recovered/Not Resolved]
  - Dizziness [Not Recovered/Not Resolved]
  - Muscular weakness [Not Recovered/Not Resolved]
  - Bladder dilatation [Unknown]

NARRATIVE: CASE EVENT DATE: 20250813
